FAERS Safety Report 10387524 (Version 1)
Quarter: 2014Q1

REPORT INFORMATION
  Report Type: Spontaneous
  Country: US (occurrence: None)
  Receive Date: 20140306
  Receipt Date: 20140306
  Transmission Date: 20141002
  Serious: Yes (Hospitalization)
  Sender: FDA-Public Use
  Company Number: 163-21880-13121310

PATIENT
  Age: 81 Year
  Sex: Female
  Weight: 70.31 kg

DRUGS (7)
  1. REVLIMID (LENALIDOMIDE) (10 MILLIGRAM, CAPSULES) [Suspect]
     Indication: PLASMA CELL MYELOMA
     Route: 048
     Dates: start: 20091117, end: 20131206
  2. CYMBALTA (DULOXETINE HYDROCHLORIDE) [Concomitant]
  3. DEXAMETHASONE [Concomitant]
  4. CARDIZEM (DILTIAZEM HYDROCHLORIDE) [Concomitant]
  5. VITAMIN D (ERGOCALCIFEROL) [Concomitant]
  6. VITAMIN B-12 (CYANOCOBALAMIN) [Concomitant]
  7. ARICEPT (DONEPEZIL HYDROCHLORIDE) [Concomitant]

REACTIONS (2)
  - Spinal pain [None]
  - Drug ineffective [None]
